FAERS Safety Report 13798318 (Version 4)
Quarter: 2017Q4

REPORT INFORMATION
  Report Type: Report from Study
  Country: AU (occurrence: AU)
  Receive Date: 20170727
  Receipt Date: 20171004
  Transmission Date: 20180320
  Serious: Yes (Other)
  Sender: FDA-Public Use
  Company Number: PHHY2017AU109288

PATIENT
  Age: 31 Year
  Sex: Female
  Weight: 46 kg

DRUGS (4)
  1. VITAMIN D [Concomitant]
     Active Substance: CHOLECALCIFEROL
     Indication: PRODUCT USED FOR UNKNOWN INDICATION
     Dosage: UNK
     Route: 065
  2. FOLIC ACID. [Concomitant]
     Active Substance: FOLIC ACID
     Indication: PRODUCT USED FOR UNKNOWN INDICATION
     Dosage: UNK
     Route: 065
  3. FERROGRAD C [Concomitant]
     Active Substance: ASCORBIC ACID\FERROUS SULFATE
     Indication: PRODUCT USED FOR UNKNOWN INDICATION
     Dosage: UNK
     Route: 065
  4. GILENYA [Suspect]
     Active Substance: FINGOLIMOD HYDROCHLORIDE
     Indication: MULTIPLE SCLEROSIS
     Dosage: UNK
     Route: 048
     Dates: start: 201607

REACTIONS (11)
  - Abortion spontaneous [Unknown]
  - Multiple sclerosis relapse [Not Recovered/Not Resolved]
  - Vision blurred [Recovering/Resolving]
  - Depressed mood [Unknown]
  - General physical health deterioration [Not Recovered/Not Resolved]
  - Hemianaesthesia [Unknown]
  - Dizziness [Recovering/Resolving]
  - Maternal exposure during pregnancy [Unknown]
  - Concomitant disease aggravated [Unknown]
  - Blood iron decreased [Unknown]
  - Headache [Unknown]

NARRATIVE: CASE EVENT DATE: 201702
